FAERS Safety Report 7468016-9 (Version None)
Quarter: 2011Q2

REPORT INFORMATION
  Report Type: 
  Country: None (occurrence: None)
  Receive Date: 20110509
  Receipt Date: 20110429
  Transmission Date: 20111010
  Serious: Yes (Other)
  Sender: FDA-Public Use
  Company Number: PHHY2011BR36578

PATIENT

DRUGS (2)
  1. GLEEVEC [Suspect]
     Indication: CHRONIC MYELOID LEUKAEMIA
     Dosage: 400 MG, DAILY
  2. GLEEVEC [Suspect]
     Dosage: 600 MG, DAILY

REACTIONS (4)
  - DRUG INEFFECTIVE [None]
  - FATIGUE [None]
  - BONE MARROW FAILURE [None]
  - GASTROINTESTINAL TOXICITY [None]
